FAERS Safety Report 25136097 (Version 2)
Quarter: 2025Q2

REPORT INFORMATION
  Report Type: Spontaneous
  Country: FR (occurrence: FR)
  Receive Date: 20250328
  Receipt Date: 20250627
  Transmission Date: 20250717
  Serious: Yes (Death, Other)
  Sender: JOHNSON AND JOHNSON
  Company Number: FR-JNJFOC-20250369162

PATIENT
  Age: 70 Year
  Sex: Female
  Weight: 70 kg

DRUGS (7)
  1. RYBREVANT [Suspect]
     Active Substance: AMIVANTAMAB-VMJW
     Indication: Non-small cell lung cancer metastatic
     Route: 065
  2. RYBREVANT [Suspect]
     Active Substance: AMIVANTAMAB-VMJW
     Route: 065
     Dates: start: 20250225, end: 20250225
  3. CARBOPLATIN [Suspect]
     Active Substance: CARBOPLATIN
     Indication: Non-small cell lung cancer metastatic
     Route: 050
     Dates: end: 20250224
  4. CARBOPLATIN [Suspect]
     Active Substance: CARBOPLATIN
     Route: 050
     Dates: start: 20250225
  5. CARBOPLATIN [Suspect]
     Active Substance: CARBOPLATIN
     Route: 050
  6. PEMETREXED [Suspect]
     Active Substance: PEMETREXED
     Indication: Non-small cell lung cancer metastatic
     Route: 050
     Dates: start: 20250225, end: 20250311
  7. PEMETREXED [Suspect]
     Active Substance: PEMETREXED
     Route: 050

REACTIONS (2)
  - Non-small cell lung cancer metastatic [Fatal]
  - Skin toxicity [Unknown]
